FAERS Safety Report 10142221 (Version 1)
Quarter: 2014Q2

REPORT INFORMATION
  Report Type: Report from Study
  Country: IN (occurrence: IN)
  Receive Date: 20140429
  Receipt Date: 20140429
  Transmission Date: 20141212
  Serious: Yes (Death)
  Sender: FDA-Public Use
  Company Number: PHHY2014IN051559

PATIENT
  Age: 70 Year
  Sex: Male

DRUGS (3)
  1. ACLASTA [Suspect]
     Indication: OSTEOPOROSIS
     Dosage: 5 MG/100 ML/YEAR
     Route: 042
     Dates: start: 20140324
  2. PENTAB//PANTOPRAZOLE SODIUM SESQUIHYDRATE [Concomitant]
     Indication: PAIN
     Dosage: 40 MG, DAILY
     Route: 048
  3. CALCIUM [Concomitant]
     Dosage: UNK

REACTIONS (1)
  - Death [Fatal]
